FAERS Safety Report 7118512-9 (Version None)
Quarter: 2010Q4

REPORT INFORMATION
  Report Type: 
  Country: None (occurrence: None)
  Receive Date: 20101123
  Receipt Date: 20100511
  Transmission Date: 20110411
  Serious: No
  Sender: FDA-Public Use
  Company Number: US-MYLANLABS-2010S1008531

PATIENT
  Age: 52 Year
  Sex: Female

DRUGS (5)
  1. CLONAZEPAM [Suspect]
     Indication: ANXIETY
     Route: 048
     Dates: start: 20100301
  2. DILAUDID [Concomitant]
     Indication: PAIN IN EXTREMITY
     Dosage: 24MG TOTAL DAILY
     Dates: start: 20100201
  3. CATAPRES [Concomitant]
     Indication: HYPERTENSION
  4. LOPRESSOR [Concomitant]
     Indication: HYPERTENSION
  5. NEURONTIN [Concomitant]
     Indication: NEUROPATHY PERIPHERAL
     Dates: start: 20100201

REACTIONS (1)
  - FALSE NEGATIVE INVESTIGATION RESULT [None]
